FAERS Safety Report 5248283-2 (Version None)
Quarter: 2007Q1

REPORT INFORMATION
  Report Type: 
  Country: None (occurrence: None)
  Receive Date: 20070227
  Receipt Date: 20061128
  Transmission Date: 20070707
  Serious: No
  Sender: FDA-Public Use
  Company Number: US-BRISTOL-MYERS SQUIBB COMPANY-13590351

PATIENT
  Sex: Female
  Weight: 81 kg

DRUGS (5)
  1. GLUCOPHAGE [Suspect]
     Indication: DIABETES MELLITUS MANAGEMENT
     Route: 048
     Dates: end: 20061127
  2. MEVACOR [Concomitant]
  3. COUMADIN [Concomitant]
  4. SYNTHROID [Concomitant]
  5. DIGOXIN [Concomitant]

REACTIONS (2)
  - PAIN IN EXTREMITY [None]
  - PALPITATIONS [None]
